FAERS Safety Report 7934005-0 (Version None)
Quarter: 2011Q4

REPORT INFORMATION
  Report Type: 
  Country: None (occurrence: None)
  Receive Date: 20111122
  Receipt Date: 20111109
  Transmission Date: 20120403
  Serious: Yes (Hospitalization, Other)
  Sender: FDA-Public Use
  Company Number: BR-ELI_LILLY_AND_COMPANY-BR201111003137

PATIENT
  Sex: Female
  Weight: 67 kg

DRUGS (1)
  1. CYMBALTA [Suspect]
     Indication: DEPRESSION
     Dosage: 120 MG, QD
     Route: 048

REACTIONS (3)
  - DYSENTERY [None]
  - BLOOD PRESSURE DECREASED [None]
  - DEHYDRATION [None]
